FAERS Safety Report 5320211-0 (Version None)
Quarter: 2007Q2

REPORT INFORMATION
  Report Type: 
  Country: None (occurrence: None)
  Receive Date: 20070503
  Receipt Date: 20070423
  Transmission Date: 20071010
  Serious: Yes (Hospitalization)
  Sender: FDA-Public Use
  Company Number: 2007BI008705

PATIENT
  Age: 73 Year
  Sex: Female
  Weight: 45.3597 kg

DRUGS (1)
  1. AVONEX [Suspect]
     Indication: MULTIPLE SCLEROSIS
     Dosage: 30 UG; ;QW; IM
     Route: 030
     Dates: start: 20010424

REACTIONS (3)
  - GALLBLADDER DISORDER [None]
  - MUSCULAR WEAKNESS [None]
  - PANCREATITIS [None]
